FAERS Safety Report 5468249-7 (Version None)
Quarter: 2007Q3

REPORT INFORMATION
  Report Type: 
  Country: None (occurrence: None)
  Receive Date: 20070921
  Receipt Date: 20070910
  Transmission Date: 20080115
  Serious: Yes (Congenital Anomaly)
  Sender: FDA-Public Use
  Company Number: B0487840A

PATIENT

DRUGS (1)
  1. VALACICLOVIR HYDROCHLORIDE (FORMULATION UNKNOWN) (VALACYCLOVIR HCL) (G [Suspect]
     Indication: CYTOMEGALOVIRUS INFECTION
     Dosage: 2 GRAM(S)/FOUR TIMES PER DAY/TRANSP
     Route: 064

REACTIONS (8)
  - DEAFNESS BILATERAL [None]
  - DRUG EXPOSURE DURING PREGNANCY [None]
  - FOETAL DISORDER [None]
  - MICROCEPHALY [None]
  - PREMATURE BABY [None]
  - ULTRASOUND ANTENATAL SCREEN ABNORMAL [None]
  - VIRAL LOAD INCREASED [None]
  - X-LINKED CHROMOSOMAL DISORDER [None]
